FAERS Safety Report 4585719-4 (Version None)
Quarter: 2005Q1

REPORT INFORMATION
  Report Type: 
  Country: None (occurrence: None)
  Receive Date: 20050210
  Receipt Date: 20050127
  Transmission Date: 20050727
  Serious: Yes (Hospitalization)
  Sender: FDA-Public Use
  Company Number: 2004-122308-NL

PATIENT
  Age: 81 Year
  Sex: Male

DRUGS (1)
  1. TICE BCG [Suspect]
     Indication: BLADDER CANCER
     Dosage: INTRAVESICAL
     Route: 043
     Dates: start: 20041108

REACTIONS (2)
  - KLEBSIELLA INFECTION [None]
  - URINARY TRACT INFECTION BACTERIAL [None]
